FAERS Safety Report 6043569-6 (Version None)
Quarter: 2009Q1

REPORT INFORMATION
  Report Type: 
  Country: None (occurrence: None)
  Receive Date: 20090115
  Receipt Date: 20090105
  Transmission Date: 20090719
  Serious: No
  Sender: FDA-Public Use
  Company Number: OSCN-PR-0812S-0651

PATIENT
  Sex: Male

DRUGS (1)
  1. OMNISCAN [Suspect]
     Indication: DRUG USE FOR UNKNOWN INDICATION
     Dosage: 15 ML, SINGLE DOSE, I.V.
     Route: 042
     Dates: start: 20081203, end: 20081203

REACTIONS (1)
  - DERMATITIS HERPETIFORMIS [None]
